FAERS Safety Report 5248387-4 (Version None)
Quarter: 2007Q1

REPORT INFORMATION
  Report Type: 
  Country: None (occurrence: None)
  Receive Date: 20070222
  Receipt Date: 20070209
  Transmission Date: 20070707
  Serious: Yes (Death, Hospitalization)
  Sender: FDA-Public Use
  Company Number: MEDI-0005304

PATIENT
  Age: 4 Month
  Sex: Male
  Weight: 8 kg

DRUGS (16)
  1. SYNAGIS [Suspect]
     Indication: PULMONARY HYPERTENSION
     Dosage: SEE IMAGE
     Route: 030
     Dates: start: 20061019, end: 20070102
  2. SYNAGIS [Suspect]
     Indication: PULMONARY HYPERTENSION
     Dosage: SEE IMAGE
     Route: 030
     Dates: start: 20061019
  3. SYNAGIS [Suspect]
     Indication: PULMONARY HYPERTENSION
     Dosage: SEE IMAGE
     Route: 030
     Dates: start: 20061201
  4. ASPIRIN [Concomitant]
  5. REGLAN [Concomitant]
  6. PEPCID [Concomitant]
  7. CAPTOPRIL [Concomitant]
  8. DIGOXIN [Concomitant]
  9. BUMEX [Concomitant]
  10. ALDACTONE [Concomitant]
  11. DIURIL (CHLOROTHIAZIDE) [Concomitant]
  12. ATIVAN [Concomitant]
  13. AMOXICILLIN [Concomitant]
  14. POTASSIUM CHLORIDE [Concomitant]
  15. TYLENOL [Concomitant]
  16. XENADERM (TRYPSIN, MYROXYLON BALSAMUM VAR. PEREIRAE BALSAM, RICINUS CO [Concomitant]

REACTIONS (5)
  - ESCHERICHIA INFECTION [None]
  - PATHOGEN RESISTANCE [None]
  - PULMONARY ARTERY STENOSIS [None]
  - URINARY TRACT INFECTION [None]
  - VIRAL UPPER RESPIRATORY TRACT INFECTION [None]
